FAERS Safety Report 5501218-7 (Version None)
Quarter: 2007Q4

REPORT INFORMATION
  Report Type: 
  Country: None (occurrence: None)
  Receive Date: 20071029
  Receipt Date: 20071017
  Transmission Date: 20080405
  Serious: Yes (Other)
  Sender: FDA-Public Use
  Company Number: US-PFIZER INC-2007087834

PATIENT
  Sex: Female
  Weight: 97.5 kg

DRUGS (5)
  1. CHANTIX [Suspect]
     Indication: SMOKING CESSATION THERAPY
  2. NEXIUM [Concomitant]
  3. CALCIUM WITH VITAMIN D [Concomitant]
  4. TOPROL-XL [Concomitant]
     Indication: HYPERTENSION
  5. VERAPAMIL [Concomitant]

REACTIONS (11)
  - ARTHRALGIA [None]
  - ASTHENIA [None]
  - BACK PAIN [None]
  - CHEST PAIN [None]
  - DYSGEUSIA [None]
  - HEART RATE IRREGULAR [None]
  - HYPERTENSION [None]
  - MALAISE [None]
  - NIGHT SWEATS [None]
  - PALPITATIONS [None]
  - WRONG TECHNIQUE IN DRUG USAGE PROCESS [None]
